FAERS Safety Report 21705959 (Version 2)
Quarter: 2023Q1

REPORT INFORMATION
  Report Type: Report from Study
  Country: JP (occurrence: JP)
  Receive Date: 20221209
  Receipt Date: 20230208
  Transmission Date: 20230417
  Serious: Yes (Disabling)
  Sender: FDA-Public Use
  Company Number: JP-ORPHANEU-2022006525

PATIENT

DRUGS (11)
  1. CYSTADANE [Suspect]
     Active Substance: BETAINE
     Indication: Homocystinuria
     Dosage: 1.1 G/DAY, TID
     Route: 048
     Dates: start: 20180515, end: 20180607
  2. CYSTADANE [Suspect]
     Active Substance: BETAINE
     Dosage: 1.4 G/DAY, TID
     Route: 048
     Dates: start: 20180608, end: 20180619
  3. CYSTADANE [Suspect]
     Active Substance: BETAINE
     Dosage: 1.8 G/DAY, TID
     Route: 048
     Dates: start: 20180620, end: 20180704
  4. CYSTADANE [Suspect]
     Active Substance: BETAINE
     Dosage: 2.5 G/DAY, TID
     Route: 048
     Dates: start: 20180705, end: 20180709
  5. CYSTADANE [Suspect]
     Active Substance: BETAINE
     Dosage: 2.5 G/DAY, BID
     Route: 048
     Dates: start: 20180710, end: 20190423
  6. CYSTADANE [Suspect]
     Active Substance: BETAINE
     Dosage: 3 G/DAY, BID
     Route: 048
     Dates: start: 20190424
  7. CYSTADANE [Suspect]
     Active Substance: BETAINE
     Dosage: 3.7 G/DAY, BID
     Route: 048
     Dates: start: 20210514
  8. FOLIC ACID [Concomitant]
     Active Substance: FOLIC ACID
     Indication: Product used for unknown indication
     Dosage: 10 MILLIGRAM, BID
     Route: 048
     Dates: start: 20180711
  9. MASBLON [Concomitant]
     Indication: Product used for unknown indication
     Dosage: 1 MILLIGRAM, QD, INJECTION
     Dates: start: 20180515
  10. FERRIC PYROPHOSPHATE [Concomitant]
     Active Substance: FERRIC PYROPHOSPHATE
     Indication: Disease complication
     Dosage: 100 MILLIGRAM, BID (STARTED BEFORE THERAPY OF CYSTADANE)
     Route: 048
     Dates: end: 20180614
  11. HERBALS [Concomitant]
     Active Substance: HERBALS
     Indication: Crying
     Dosage: 1 GRAM, BID
     Route: 048
     Dates: start: 20180606, end: 20180610

REACTIONS (3)
  - Neurodevelopmental disorder [Not Recovered/Not Resolved]
  - Off label use [Recovered/Resolved]
  - Therapeutic product effect incomplete [Recovered/Resolved]

NARRATIVE: CASE EVENT DATE: 20180101
